FAERS Safety Report 4708488-3 (Version None)
Quarter: 2005Q3

REPORT INFORMATION
  Report Type: 
  Country: None (occurrence: None)
  Receive Date: 20050707
  Receipt Date: 20050705
  Transmission Date: 20060218
  Serious: Yes (Other)
  Sender: FDA-Public Use
  Company Number: JP-SANOFI-SYNTHELABO-F01200501157

PATIENT
  Sex: Male

DRUGS (3)
  1. OXALIPLATIN [Suspect]
     Indication: COLON CANCER
     Route: 042
     Dates: start: 20050525, end: 20050525
  2. FLUOROURACIL [Suspect]
     Dosage: 750 MG/BODY IV BOLUS AND 1000 MG/BODY CONTINUOUS INFUSION ON DAYS 1 AND 2, Q2W
     Route: 042
     Dates: start: 20050525, end: 20050526
  3. CALCIUM LEVOFOLINATE [Suspect]
     Route: 042
     Dates: start: 20050525, end: 20050526

REACTIONS (2)
  - EPILEPSY [None]
  - HAEMOGLOBIN DECREASED [None]
